FAERS Safety Report 14392609 (Version 1)
Quarter: 2018Q1

REPORT INFORMATION
  Report Type: Report from Study
  Country: CA (occurrence: CA)
  Receive Date: 20180116
  Receipt Date: 20180116
  Transmission Date: 20180509
  Serious: Yes (Other)
  Sender: FDA-Public Use
  Company Number: CA-HLSUS-2018-CA-000040

PATIENT
  Age: 30 Year
  Sex: Male

DRUGS (4)
  1. CLOZAPINE. [Suspect]
     Active Substance: CLOZAPINE
     Indication: SCHIZOPHRENIA
     Route: 065
  2. ZUCLOPENTHIXOL DECANOATE [Concomitant]
     Active Substance: ZUCLOPENTHIXOL DECANOATE
     Dosage: 1.0 DOSAGE
     Route: 065
  3. ZYPREXA [Concomitant]
     Active Substance: OLANZAPINE
     Route: 065
  4. ZYPREXA [Concomitant]
     Active Substance: OLANZAPINE
     Route: 065

REACTIONS (3)
  - Parkinsonism [Unknown]
  - Therapeutic response decreased [Unknown]
  - Adverse drug reaction [Unknown]
